FAERS Safety Report 11373548 (Version 1)
Quarter: 2015Q3

REPORT INFORMATION
  Report Type: Spontaneous
  Country: DE (occurrence: None)
  Receive Date: 20150811
  Receipt Date: 20150811
  Transmission Date: 20151125
  Serious: No
  Sender: FDA-Public Use
  Company Number: 1508DEU000714

PATIENT
  Age: 59 Year
  Sex: Female

DRUGS (1)
  1. KEIMAX (CEFTIBUTEN) CAPSULE, 400MG [Suspect]
     Active Substance: CEFTIBUTEN
     Indication: UPPER RESPIRATORY TRACT INFECTION
     Route: 048
     Dates: start: 20150608

REACTIONS (1)
  - Vertigo [None]

NARRATIVE: CASE EVENT DATE: 201506
